FAERS Safety Report 9394151 (Version 1)
Quarter: 2013Q3

REPORT INFORMATION
  Report Type: Spontaneous
  Country: US (occurrence: US)
  Receive Date: 20130710
  Receipt Date: 20130710
  Transmission Date: 20140515
  Serious: No
  Sender: FDA-Public Use
  Company Number: US-TEVA-416342USA

PATIENT
  Sex: Female

DRUGS (5)
  1. PARAGARD 380A [Suspect]
     Route: 015
     Dates: start: 20130513, end: 20130628
  2. METFORMIN [Concomitant]
     Indication: POLYCYSTIC OVARIES
  3. NORVASC [Concomitant]
     Indication: HYPERTENSION
  4. METOPROLOL [Concomitant]
  5. UNSPCEIFIED ANTIDEPRESSANT [Concomitant]
     Indication: DEPRESSION

REACTIONS (1)
  - Device expulsion [Recovered/Resolved]
